FAERS Safety Report 17006279 (Version 1)
Quarter: 2019Q4

REPORT INFORMATION
  Report Type: Spontaneous
  Country: US (occurrence: US)
  Receive Date: 20191107
  Receipt Date: 20191107
  Transmission Date: 20200122
  Serious: Yes (Other)
  Sender: FDA-Public Use
  Company Number: US-COSETTE PHARMACEUTICALS, INC.-GW2019US000171

PATIENT

DRUGS (1)
  1. METRONIDAZOLE. [Suspect]
     Active Substance: METRONIDAZOLE
     Indication: FUSOBACTERIUM INFECTION
     Dosage: UNK
     Route: 048

REACTIONS (1)
  - Encephalopathy [Recovered/Resolved]
